FAERS Safety Report 6156963-X (Version None)
Quarter: 2009Q2

REPORT INFORMATION
  Report Type: 
  Country: None (occurrence: None)
  Receive Date: 20090416
  Receipt Date: 20090406
  Transmission Date: 20091009
  Serious: Yes (Hospitalization)
  Sender: FDA-Public Use
  Company Number: B0569990A

PATIENT
  Sex: Female
  Weight: 65 kg

DRUGS (4)
  1. AUGMENTIN '125' [Suspect]
     Indication: DRUG USE FOR UNKNOWN INDICATION
     Route: 048
     Dates: start: 20090209
  2. SELEKTINE [Suspect]
     Route: 048
     Dates: start: 20090211
  3. EUTHYROX [Concomitant]
     Route: 048
     Dates: start: 19840101
  4. ATENOLOL [Concomitant]
     Route: 048

REACTIONS (2)
  - DIARRHOEA [None]
  - DRUG INTERACTION [None]
